FAERS Safety Report 23789861 (Version 1)
Quarter: 2024Q2

REPORT INFORMATION
  Report Type: Spontaneous
  Country: US (occurrence: US)
  Receive Date: 20240426
  Receipt Date: 20240426
  Transmission Date: 20240716
  Serious: No
  Sender: FDA-Public Use
  Company Number: US-ANIPHARMA-2023-US-028567

PATIENT
  Age: 77 Year
  Sex: Female

DRUGS (1)
  1. CANDESARTAN CILEXETIL [Suspect]
     Active Substance: CANDESARTAN CILEXETIL
     Indication: Cardiac disorder
     Dosage: 4 MG, 8 MG
     Route: 065

REACTIONS (5)
  - Dizziness [Unknown]
  - Blood pressure fluctuation [Unknown]
  - Palpitations [Unknown]
  - Chest discomfort [Unknown]
  - Abdominal discomfort [Unknown]
